FAERS Safety Report 5400029-0 (Version None)
Quarter: 2007Q3

REPORT INFORMATION
  Report Type: 
  Country: None (occurrence: None)
  Receive Date: 20070725
  Receipt Date: 20070717
  Transmission Date: 20080115
  Serious: Yes (Death, Life-Threatening)
  Sender: FDA-Public Use
  Company Number: 062-C5013-07061630

PATIENT
  Age: 78 Year
  Sex: Female
  Weight: 56 kg

DRUGS (7)
  1. CC-5013 (LENALIDOMIDE) (CAPSULES) [Suspect]
     Indication: MULTIPLE MYELOMA
     Dosage: 25 MG, DAY 1-21, ORAL
     Route: 048
     Dates: start: 20070614, end: 20070620
  2. DEXAMETHASONE TAB [Suspect]
     Indication: MULTIPLE MYELOMA
     Dosage: 40 MG, DAY 1-4, 9-12, 17-20, ORAL
     Route: 048
     Dates: start: 20070614, end: 20070617
  3. DURAGESIC-100 [Concomitant]
  4. FUROSEMIDE [Concomitant]
  5. AMARYL [Concomitant]
  6. OMEPRAZOLE [Concomitant]
  7. MORPHINE SULFATE [Concomitant]

REACTIONS (4)
  - AZOTAEMIA [None]
  - RENAL FAILURE ACUTE [None]
  - STUPOR [None]
  - TUMOUR LYSIS SYNDROME [None]
